FAERS Safety Report 18668070 (Version 1)
Quarter: 2020Q4

REPORT INFORMATION
  Report Type: Spontaneous
  Country: AU (occurrence: AU)
  Receive Date: 20201228
  Receipt Date: 20201228
  Transmission Date: 20210114
  Serious: Yes (Other)
  Sender: FDA-Public Use
  Company Number: AU-EMD SERONO-9208608

PATIENT
  Age: 55 Year
  Sex: Female
  Weight: 48 kg

DRUGS (2)
  1. MAVENCLAD [Suspect]
     Active Substance: CLADRIBINE
     Indication: RELAPSING-REMITTING MULTIPLE SCLEROSIS
     Dosage: FIRST COURSE THERAPY
     Route: 048
     Dates: start: 201907
  2. MAVENCLAD [Interacting]
     Active Substance: CLADRIBINE
     Dosage: SECOND COURSE FIRST CYCLE THERAPY: ONE TABLET PER DAY
     Route: 048
     Dates: start: 20201207, end: 20201210

REACTIONS (2)
  - Drug interaction [Unknown]
  - Petechiae [Recovering/Resolving]

NARRATIVE: CASE EVENT DATE: 20201212
